FAERS Safety Report 7560962-0 (Version None)
Quarter: 2011Q2

REPORT INFORMATION
  Report Type: 
  Country: None (occurrence: None)
  Receive Date: 20110621
  Receipt Date: 20110613
  Transmission Date: 20111010
  Serious: Yes (Death)
  Sender: FDA-Public Use
  Company Number: US-CELGENEUS-163-21880-11032643

PATIENT
  Sex: Male

DRUGS (7)
  1. COREG [Concomitant]
     Route: 065
  2. LOTREL [Concomitant]
     Route: 065
  3. ASPIRIN [Concomitant]
     Route: 065
  4. ASCORBIC ACID [Concomitant]
     Route: 065
  5. LASIX [Concomitant]
     Route: 065
  6. REVLIMID [Suspect]
     Indication: MULTIPLE MYELOMA
     Dosage: 10 MILLIGRAM
     Route: 048
     Dates: start: 20100401, end: 20110101
  7. ZOCOR [Concomitant]
     Route: 065

REACTIONS (3)
  - RENAL FAILURE [None]
  - SEPSIS [None]
  - PNEUMONIA [None]
